FAERS Safety Report 4830492-5 (Version None)
Quarter: 2005Q4

REPORT INFORMATION
  Report Type: 
  Country: None (occurrence: None)
  Receive Date: 20051114
  Receipt Date: 20051102
  Transmission Date: 20060501
  Serious: Yes (Other)
  Sender: FDA-Public Use
  Company Number: 2005150560

PATIENT
  Age: 42 Year
  Sex: Female
  Weight: 47.6277 kg

DRUGS (2)
  1. LYRICA [Suspect]
     Indication: COMPLEX PARTIAL SEIZURES
     Dosage: 75 MG (75 MG, 1 IN 1 D), ORAL
     Route: 048
     Dates: start: 20051031
  2. KLONOPIN [Concomitant]

REACTIONS (8)
  - DIFFICULTY IN WALKING [None]
  - DIPLOPIA [None]
  - FALL [None]
  - GAIT DISTURBANCE [None]
  - MOTOR DYSFUNCTION [None]
  - SOMNOLENCE [None]
  - TREATMENT NONCOMPLIANCE [None]
  - VISION BLURRED [None]
